FAERS Safety Report 4590556-0 (Version None)
Quarter: 2005Q1

REPORT INFORMATION
  Report Type: 
  Country: None (occurrence: None)
  Receive Date: 20050224
  Receipt Date: 20041013
  Transmission Date: 20050727
  Serious: Yes (Other)
  Sender: FDA-Public Use
  Company Number: US-GLAXOSMITHKLINE-A0529695A

PATIENT
  Age: 42 Year
  Sex: Female

DRUGS (2)
  1. LAMICTAL [Suspect]
     Indication: BIPOLAR DISORDER
     Dosage: 12.5MG PER DAY
     Route: 048
     Dates: start: 20041005, end: 20041012
  2. KLONOPIN [Concomitant]
     Indication: ANXIETY
     Dosage: 1.5MG PER DAY
     Route: 048

REACTIONS (7)
  - BACK PAIN [None]
  - CONVULSION [None]
  - HEAD DISCOMFORT [None]
  - HEADACHE [None]
  - NECK PAIN [None]
  - TONGUE BITING [None]
  - TRISMUS [None]
